FAERS Safety Report 5227778-1 (Version None)
Quarter: 2007Q1

REPORT INFORMATION
  Report Type: 
  Country: None (occurrence: None)
  Receive Date: 20070202
  Receipt Date: 20070125
  Transmission Date: 20070707
  Serious: Yes (Other)
  Sender: FDA-Public Use
  Company Number: US-PFIZER INC-2007007322

PATIENT
  Sex: Male

DRUGS (1)
  1. GEODON (IM) [Suspect]
     Route: 030

REACTIONS (1)
  - INCORRECT ROUTE OF DRUG ADMINISTRATION [None]
